FAERS Safety Report 8500772-0 (Version None)
Quarter: 2012Q2

REPORT INFORMATION
  Report Type: 
  Country: None (occurrence: None)
  Receive Date: 20120405
  Receipt Date: 20100115
  Transmission Date: 20120825
  Serious: Yes (Other)
  Sender: FDA-Public Use
  Company Number: PHEH2009US08361

PATIENT
  Age: 81 Year
  Sex: Female
  Weight: 62.1 kg

DRUGS (11)
  1. METOPROLOL TARTRATE [Concomitant]
  2. SIMVASTATIN [Concomitant]
  3. TOPROL-XL [Concomitant]
  4. ASPIRIN [Concomitant]
  5. VICODIN ES (HYDROCODONE BITARTRATE, PARACETAMAOL) [Concomitant]
  6. TYLENOL PM, EXTRA STRENGTH (DIPHENHYDRAMINE, PARACETAMOL) [Concomitant]
  7. RECLAST [Suspect]
     Indication: OSTEOPOROSIS
     Dosage: 5 MG, Q YEAR, INTRAVENOUS
     Route: 042
     Dates: start: 20080601, end: 20080601
  8. MUTLIVITAMINS (ASCORBIC ACID, ERGOCALCIFEROL, FOLIC ACID, NICOTINAMIDE [Concomitant]
  9. LISINOPRIL [Concomitant]
  10. LEXAPRO [Concomitant]
  11. CALCIUM CARBONATE [Concomitant]

REACTIONS (13)
  - TOOTH FRACTURE [None]
  - TOOTH INFECTION [None]
  - TOOTH EXTRACTION [None]
  - ORAL SURGERY [None]
  - ORAL PAIN [None]
  - MUSCULOSKELETAL DISCOMFORT [None]
  - DENTAL IMPLANTATION [None]
  - PAIN IN JAW [None]
  - MOUTH ULCERATION [None]
  - ARTIFICIAL CROWN PROCEDURE [None]
  - OSTEONECROSIS [None]
  - BONE DISORDER [None]
  - DEVICE BREAKAGE [None]
